FAERS Safety Report 9460229 (Version 2)
Quarter: 2013Q4

REPORT INFORMATION
  Report Type: Spontaneous
  Country: US (occurrence: US)
  Receive Date: 20130815
  Receipt Date: 20131104
  Transmission Date: 20140711
  Serious: Yes (Other)
  Sender: FDA-Public Use
  Company Number: US-PFIZER INC-2013236333

PATIENT
  Age: 54 Year
  Sex: Male
  Weight: 86.17 kg

DRUGS (2)
  1. CHANTIX [Suspect]
     Indication: SMOKING CESSATION THERAPY
     Dosage: 0.5 MG, 1X/DAY
     Route: 048
     Dates: start: 20130720, end: 2013
  2. CHANTIX [Suspect]
     Dosage: 1 MG, 2X/DAY
     Route: 048
     Dates: start: 2013, end: 2013

REACTIONS (5)
  - Migraine [Recovered/Resolved]
  - Allergic sinusitis [Unknown]
  - Hearing impaired [Unknown]
  - Sleep disorder [Unknown]
  - Visual impairment [Unknown]
